FAERS Safety Report 8992850 (Version 1)
Quarter: 2013Q1

REPORT INFORMATION
  Report Type: Spontaneous
  Country: US (occurrence: US)
  Receive Date: 20130102
  Receipt Date: 20130102
  Transmission Date: 20140127
  Serious: Yes (Other)
  Sender: FDA-Public Use
  Company Number: US-BAYER-2012-136331

PATIENT
  Age: 40 Year
  Sex: Female
  Weight: 95.24 kg

DRUGS (4)
  1. YAZ [Suspect]
  2. GIANVI [Suspect]
  3. BEYAZ [Suspect]
  4. LEXAPRO [Concomitant]
     Dosage: 20 MG, UNK
     Dates: start: 20100601, end: 20120716

REACTIONS (1)
  - Thrombophlebitis superficial [None]
